FAERS Safety Report 4753352-7 (Version None)
Quarter: 2005Q3

REPORT INFORMATION
  Report Type: 
  Country: None (occurrence: None)
  Receive Date: 20050826
  Receipt Date: 20050817
  Transmission Date: 20060218
  Serious: Yes (Other)
  Sender: FDA-Public Use
  Company Number: US-JNJFOC-20050702217

PATIENT
  Sex: Female
  Weight: 54.43 kg

DRUGS (13)
  1. REMICADE [Suspect]
     Dates: start: 20031001, end: 20050301
  2. REMICADE [Suspect]
     Dates: start: 20031001, end: 20050301
  3. REMICADE [Suspect]
     Dates: start: 20031001, end: 20050301
  4. REMICADE [Suspect]
     Indication: RHEUMATOID ARTHRITIS
     Dates: start: 20031001, end: 20050301
  5. METHOTREXATE [Concomitant]
     Indication: RHEUMATOID ARTHRITIS
  6. MAVIC [Concomitant]
     Indication: BLOOD PRESSURE
  7. MAXZIDE [Concomitant]
  8. MAXZIDE [Concomitant]
     Indication: BLOOD PRESSURE
     Dosage: ^25 MG IND^
  9. VITAMINS [Concomitant]
  10. SOY [Concomitant]
  11. CALCIUM GLUCONATE [Concomitant]
  12. YASMIN [Concomitant]
  13. YASMIN [Concomitant]

REACTIONS (6)
  - INFUSION RELATED REACTION [None]
  - NAUSEA [None]
  - PHARYNGOLARYNGEAL PAIN [None]
  - POLYNEUROPATHY [None]
  - PRURITUS [None]
  - RASH [None]
